FAERS Safety Report 7677569-7 (Version None)
Quarter: 2011Q3

REPORT INFORMATION
  Report Type: 
  Country: None (occurrence: None)
  Receive Date: 20110811
  Receipt Date: 20110811
  Transmission Date: 20111222
  Serious: Yes (Disabling)
  Sender: FDA-Public Use
  Company Number: None

PATIENT
  Sex: Male
  Weight: 165 kg

DRUGS (3)
  1. ZYVOX [Suspect]
     Dosage: 600 MG
     Route: 048
  2. LEXAPRO [Concomitant]
  3. ZOFRAN [Concomitant]

REACTIONS (1)
  - MYOCLONUS [None]
